FAERS Safety Report 18545090 (Version 2)
Quarter: 2021Q3

REPORT INFORMATION
  Report Type: Spontaneous
  Country: JP (occurrence: JP)
  Receive Date: 20201125
  Receipt Date: 20210708
  Transmission Date: 20211014
  Serious: No
  Sender: FDA-Public Use
  Company Number: JP-TEVA-2020-JP-1852819

PATIENT
  Age: 79 Year
  Sex: Female

DRUGS (6)
  1. TRERIEF [Concomitant]
     Active Substance: ZONISAMIDE
  2. DOPACOL [Concomitant]
     Active Substance: CARBIDOPA\LEVODOPA
  3. MAGMITT [Concomitant]
     Active Substance: MAGNESIUM OXIDE
  4. AZILECT [Suspect]
     Active Substance: RASAGILINE MESYLATE
     Dosage: 1 MILLIGRAM DAILY;
     Route: 048
     Dates: start: 20201021
  5. CRESTOR OD [Concomitant]
     Active Substance: ROSUVASTATIN CALCIUM
  6. AZILECT [Suspect]
     Active Substance: RASAGILINE MESYLATE
     Indication: PARKINSON^S DISEASE
     Dosage: 1 MILLIGRAM DAILY;
     Route: 048
     Dates: start: 20201014, end: 20201017

REACTIONS (1)
  - Hypersomnia [Recovered/Resolved]

NARRATIVE: CASE EVENT DATE: 20201016
